FAERS Safety Report 17207994 (Version 13)
Quarter: 2025Q2

REPORT INFORMATION
  Report Type: Report from Study
  Country: CA (occurrence: CA)
  Receive Date: 20191227
  Receipt Date: 20250610
  Transmission Date: 20250716
  Serious: Yes (Other)
  Sender: PFIZER
  Company Number: CA-PFIZER INC-2019554322

PATIENT
  Age: 63 Year
  Sex: Female

DRUGS (93)
  1. ELETRIPTAN HYDROBROMIDE [Suspect]
     Active Substance: ELETRIPTAN HYDROBROMIDE
     Indication: Migraine
  2. ELETRIPTAN HYDROBROMIDE [Suspect]
     Active Substance: ELETRIPTAN HYDROBROMIDE
  3. ELETRIPTAN HYDROBROMIDE [Suspect]
     Active Substance: ELETRIPTAN HYDROBROMIDE
  4. HYDROMORPHONE HYDROCHLORIDE [Suspect]
     Active Substance: HYDROMORPHONE HYDROCHLORIDE
     Indication: Migraine
     Dosage: 2 MG, 2X/DAY
  5. HYDROMORPHONE HYDROCHLORIDE [Suspect]
     Active Substance: HYDROMORPHONE HYDROCHLORIDE
     Dosage: 2 MG, 2X/DAY
  6. HYDROMORPHONE HYDROCHLORIDE [Suspect]
     Active Substance: HYDROMORPHONE HYDROCHLORIDE
     Dosage: 4 MG, 1X/DAY
  7. HYDROMORPHONE HYDROCHLORIDE [Suspect]
     Active Substance: HYDROMORPHONE HYDROCHLORIDE
     Dosage: 4 MG, 1X/DAY
  8. HYDROMORPHONE HYDROCHLORIDE [Suspect]
     Active Substance: HYDROMORPHONE HYDROCHLORIDE
     Dosage: 4 MG, 1X/DAY
  9. HYDROMORPHONE HYDROCHLORIDE [Suspect]
     Active Substance: HYDROMORPHONE HYDROCHLORIDE
     Dosage: 4 MG, 1X/DAY
  10. HYDROMORPHONE HYDROCHLORIDE [Suspect]
     Active Substance: HYDROMORPHONE HYDROCHLORIDE
     Dosage: 4 MG, 1X/DAY
  11. HYDROMORPHONE HYDROCHLORIDE [Suspect]
     Active Substance: HYDROMORPHONE HYDROCHLORIDE
     Dosage: 4 MG, 1X/DAY
  12. TOPIRAMATE [Suspect]
     Active Substance: TOPIRAMATE
     Indication: Migraine
  13. TOPIRAMATE [Suspect]
     Active Substance: TOPIRAMATE
     Dosage: 200 MG, 1X/DAY
  14. VERAPAMIL HCL [Suspect]
     Active Substance: VERAPAMIL HYDROCHLORIDE
     Indication: Migraine
  15. VERAPAMIL HCL [Suspect]
     Active Substance: VERAPAMIL HYDROCHLORIDE
  16. PROPRANOLOL HYDROCHLORIDE [Suspect]
     Active Substance: PROPRANOLOL HYDROCHLORIDE
     Indication: Migraine
     Dosage: 160 MG, 1X/DAY
  17. PROPRANOLOL HYDROCHLORIDE [Suspect]
     Active Substance: PROPRANOLOL HYDROCHLORIDE
     Dosage: 160 MG, 1X/DAY
  18. PROPRANOLOL HYDROCHLORIDE [Suspect]
     Active Substance: PROPRANOLOL HYDROCHLORIDE
     Dosage: 160 MG, 1X/DAY
  19. MAGNESIUM SULFATE [Suspect]
     Active Substance: MAGNESIUM SULFATE
     Indication: Migraine
  20. ACETAMINOPHEN\OXYCODONE HYDROCHLORIDE [Suspect]
     Active Substance: ACETAMINOPHEN\OXYCODONE HYDROCHLORIDE
     Indication: Migraine
  21. ACETAMINOPHEN\OXYCODONE HYDROCHLORIDE [Suspect]
     Active Substance: ACETAMINOPHEN\OXYCODONE HYDROCHLORIDE
  22. ACETAMINOPHEN\OXYCODONE HYDROCHLORIDE [Suspect]
     Active Substance: ACETAMINOPHEN\OXYCODONE HYDROCHLORIDE
  23. METOPROLOL [Suspect]
     Active Substance: METOPROLOL
     Indication: Migraine
     Dosage: 25 MG, 2X/DAY
     Route: 048
  24. METOPROLOL [Suspect]
     Active Substance: METOPROLOL
     Dosage: 50 MG, 1X/DAY
     Route: 048
  25. AIMOVIG [Suspect]
     Active Substance: ERENUMAB-AOOE
     Indication: Migraine
  26. AIMOVIG [Suspect]
     Active Substance: ERENUMAB-AOOE
     Route: 042
  27. AIMOVIG [Suspect]
     Active Substance: ERENUMAB-AOOE
     Route: 042
  28. ERENUMAB-AOOE [Suspect]
     Active Substance: ERENUMAB-AOOE
     Indication: Migraine
  29. VERAPAMIL [Suspect]
     Active Substance: VERAPAMIL HYDROCHLORIDE
     Indication: Migraine
  30. ACETAMINOPHEN [Concomitant]
     Active Substance: ACETAMINOPHEN
     Indication: Arthritis
  31. ACETAMINOPHEN [Concomitant]
     Active Substance: ACETAMINOPHEN
     Dosage: 1000 MG, 4X/DAY
  32. ACETAMINOPHEN [Concomitant]
     Active Substance: ACETAMINOPHEN
  33. ACETAMINOPHEN [Concomitant]
     Active Substance: ACETAMINOPHEN
  34. ACETAMINOPHEN [Concomitant]
     Active Substance: ACETAMINOPHEN
  35. ACETAMINOPHEN [Concomitant]
     Active Substance: ACETAMINOPHEN
     Dosage: 4000 MG, 1X/DAY
  36. AMITRIPTYLINE [Concomitant]
     Active Substance: AMITRIPTYLINE
     Indication: Migraine prophylaxis
  37. AMITRIPTYLINE [Concomitant]
     Active Substance: AMITRIPTYLINE
  38. CALCIUM [Concomitant]
     Active Substance: CALCIUM
  39. CALCIUM [Concomitant]
     Active Substance: CALCIUM
  40. HYDROCHLOROTHIAZIDE [Concomitant]
     Active Substance: HYDROCHLOROTHIAZIDE
  41. HYDROCHLOROTHIAZIDE [Concomitant]
     Active Substance: HYDROCHLOROTHIAZIDE
  42. HYDROCHLOROTHIAZIDE [Concomitant]
     Active Substance: HYDROCHLOROTHIAZIDE
  43. LIPITOR [Concomitant]
     Active Substance: ATORVASTATIN CALCIUM
  44. NIFEDIPINE [Concomitant]
     Active Substance: NIFEDIPINE
     Indication: Migraine prophylaxis
  45. NIFEDIPINE [Concomitant]
     Active Substance: NIFEDIPINE
  46. NIFEDIPINE [Concomitant]
     Active Substance: NIFEDIPINE
  47. PANTOPRAZOLE [Concomitant]
     Active Substance: PANTOPRAZOLE
  48. PANTOPRAZOLE [Concomitant]
     Active Substance: PANTOPRAZOLE
  49. PIZOTYLINE MALEATE [Concomitant]
     Active Substance: PIZOTYLINE MALEATE
     Indication: Migraine prophylaxis
     Dosage: 3 MG, 2X/DAY
  50. PIZOTYLINE MALEATE [Concomitant]
     Active Substance: PIZOTYLINE MALEATE
     Dosage: 3 MG, 2X/DAY
  51. PIZOTYLINE MALEATE [Concomitant]
     Active Substance: PIZOTYLINE MALEATE
     Dosage: 6 MG, 1X/DAY
  52. PIZOTYLINE MALEATE [Concomitant]
     Active Substance: PIZOTYLINE MALEATE
     Dosage: 6 MG, 1X/DAY
  53. PIZOTYLINE MALEATE [Concomitant]
     Active Substance: PIZOTYLINE MALEATE
     Dosage: 6 MG, 1X/DAY
  54. PIZOTYLINE MALEATE [Concomitant]
     Active Substance: PIZOTYLINE MALEATE
     Dosage: 3 MG, 1X/DAY
  55. PROZAC [Concomitant]
     Active Substance: FLUOXETINE HYDROCHLORIDE
     Indication: Migraine prophylaxis
  56. PROZAC [Concomitant]
     Active Substance: FLUOXETINE HYDROCHLORIDE
  57. RABEPRAZOLE [Concomitant]
     Active Substance: RABEPRAZOLE
  58. REMERON [Concomitant]
     Active Substance: MIRTAZAPINE
     Indication: Migraine prophylaxis
  59. REMERON [Concomitant]
     Active Substance: MIRTAZAPINE
  60. SERTRALINE HYDROCHLORIDE [Concomitant]
     Active Substance: SERTRALINE HYDROCHLORIDE
     Dosage: 100 MG, 2X/DAY
  61. SERTRALINE HYDROCHLORIDE [Concomitant]
     Active Substance: SERTRALINE HYDROCHLORIDE
     Dosage: 100 MG, 2X/DAY
  62. SERTRALINE HYDROCHLORIDE [Concomitant]
     Active Substance: SERTRALINE HYDROCHLORIDE
     Dosage: 200 MG, 1X/DAY
  63. SERTRALINE HYDROCHLORIDE [Concomitant]
     Active Substance: SERTRALINE HYDROCHLORIDE
     Dosage: 200 MG, 1X/DAY
  64. SERTRALINE HYDROCHLORIDE [Concomitant]
     Active Substance: SERTRALINE HYDROCHLORIDE
     Dosage: 200 MG, 1X/DAY
  65. SERTRALINE HYDROCHLORIDE [Concomitant]
     Active Substance: SERTRALINE HYDROCHLORIDE
     Dosage: 200 MG, 1X/DAY
  66. VALPROATE SODIUM [Concomitant]
     Active Substance: VALPROATE SODIUM
     Indication: Migraine prophylaxis
     Dosage: 250 MG, 2X/DAY
  67. VALPROATE SODIUM [Concomitant]
     Active Substance: VALPROATE SODIUM
     Dosage: 250 MG, 2X/DAY
  68. VALPROATE SODIUM [Concomitant]
     Active Substance: VALPROATE SODIUM
     Dosage: 500 MG, 1X/DAY
  69. VALPROATE SODIUM [Concomitant]
     Active Substance: VALPROATE SODIUM
     Dosage: 500 MG, 1X/DAY
  70. VALPROATE SODIUM [Concomitant]
     Active Substance: VALPROATE SODIUM
     Dosage: 500 MG, 1X/DAY
  71. VALPROATE SODIUM [Concomitant]
     Active Substance: VALPROATE SODIUM
     Dosage: 500 MG, 1X/DAY
  72. TOPAMAX [Concomitant]
     Active Substance: TOPIRAMATE
     Indication: Migraine prophylaxis
     Dosage: 100 MG, 2X/DAY
  73. TOPAMAX [Concomitant]
     Active Substance: TOPIRAMATE
     Dosage: 200 MG, 1X/DAY
  74. VITAMIN B12 [Concomitant]
     Active Substance: CYANOCOBALAMIN
  75. VITAMIN B12 [Concomitant]
     Active Substance: CYANOCOBALAMIN
  76. ERGOCALCIFEROL [Concomitant]
     Active Substance: ERGOCALCIFEROL
  77. ZOPICLONE [Concomitant]
     Active Substance: ZOPICLONE
  78. ZOPICLONE [Concomitant]
     Active Substance: ZOPICLONE
  79. ZOPICLONE [Concomitant]
     Active Substance: ZOPICLONE
     Dosage: 15 MG, 1X/DAY
  80. ZOPICLONE [Concomitant]
     Active Substance: ZOPICLONE
     Dosage: 15 MG, 1X/DAY
  81. ERGOCALCIFEROL [Concomitant]
     Active Substance: ERGOCALCIFEROL
  82. ERGOCALCIFEROL [Concomitant]
     Active Substance: ERGOCALCIFEROL
  83. ERGOCALCIFEROL [Concomitant]
     Active Substance: ERGOCALCIFEROL
  84. ERGOCALCIFEROL [Concomitant]
     Active Substance: ERGOCALCIFEROL
  85. GABAPENTIN [Concomitant]
     Active Substance: GABAPENTIN
  86. GABAPENTIN [Concomitant]
     Active Substance: GABAPENTIN
  87. GABAPENTIN [Concomitant]
     Active Substance: GABAPENTIN
  88. RIBOFLAVIN [Concomitant]
     Active Substance: RIBOFLAVIN
  89. RIBOFLAVIN [Concomitant]
     Active Substance: RIBOFLAVIN
  90. COBAMAMIDE [Concomitant]
     Active Substance: COBAMAMIDE
  91. COBAMAMIDE [Concomitant]
     Active Substance: COBAMAMIDE
  92. COBAMAMIDE [Concomitant]
     Active Substance: COBAMAMIDE
  93. CYANOCOBALAMIN [Concomitant]
     Active Substance: CYANOCOBALAMIN

REACTIONS (13)
  - Anxiety [Unknown]
  - Blood pressure increased [Unknown]
  - Breast pain [Unknown]
  - Communication disorder [Unknown]
  - Headache [Unknown]
  - Medication overuse headache [Unknown]
  - Pain [Unknown]
  - Paraesthesia [Unknown]
  - Rubber sensitivity [Unknown]
  - Stress [Unknown]
  - Contraindicated product administered [Unknown]
  - Off label use [Unknown]
  - Drug ineffective for unapproved indication [Unknown]
